FAERS Safety Report 8355531-9 (Version None)
Quarter: 2012Q2

REPORT INFORMATION
  Report Type: 
  Country: None (occurrence: None)
  Receive Date: 20120513
  Receipt Date: 20101018
  Transmission Date: 20120825
  Serious: Yes (Other)
  Sender: FDA-Public Use
  Company Number: CN-ALLERGAN-1017076US

PATIENT

DRUGS (1)
  1. BOTULINUM TOXIN TYPE A [Suspect]
     Indication: MUSCLE HYPERTROPHY
     Dosage: UNK
     Route: 030

REACTIONS (7)
  - DYSARTHRIA [None]
  - COUGH [None]
  - NAUSEA [None]
  - SPEECH DISORDER [None]
  - MUSCULAR WEAKNESS [None]
  - REGURGITATION [None]
  - CHOKING [None]
